FAERS Safety Report 11350351 (Version 1)
Quarter: 2015Q3

REPORT INFORMATION
  Report Type: Spontaneous
  Country: FR (occurrence: FR)
  Receive Date: 20150807
  Receipt Date: 20150807
  Transmission Date: 20151125
  Serious: Yes (Hospitalization)
  Sender: FDA-Public Use
  Company Number: FR-TEVA-582960ISR

PATIENT
  Age: 99 Year
  Sex: Female

DRUGS (6)
  1. OLMETEC 20 MG [Suspect]
     Active Substance: OLMESARTAN MEDOXOMIL
     Indication: HYPERTENSION
     Dosage: 1 DOSAGE FORMS DAILY; LONG-STANDING TREATMENT
     Route: 048
     Dates: end: 20150626
  2. EFFERALGAN [Concomitant]
     Active Substance: ACETAMINOPHEN
     Dosage: EFFERVESCENT TABLET, LONG STANDING TREATMENT
  3. INEXIUM [Concomitant]
     Active Substance: ESOMEPRAZOLE
     Dosage: 20 MILLIGRAM DAILY; LONG-STANDING TREATMENT
  4. FUROSEMIDE TEVA 40 MG [Suspect]
     Active Substance: FUROSEMIDE
     Indication: OEDEMA PERIPHERAL
     Dosage: 1 DOSAGE FORMS DAILY;
     Route: 048
     Dates: start: 201503, end: 20150626
  5. DIFFU K [Suspect]
     Active Substance: POTASSIUM CHLORIDE
     Dosage: LONG-STANDING TREATMENT
     Route: 048
     Dates: end: 20150626
  6. ACIDE FOLIQUE CCD [Concomitant]
     Dosage: LONG-STANDING TREATMENT.

REACTIONS (3)
  - Acute prerenal failure [Recovered/Resolved]
  - Dehydration [Recovered/Resolved]
  - Hyperkalaemia [Recovered/Resolved]

NARRATIVE: CASE EVENT DATE: 20150626
